FAERS Safety Report 22166902 (Version 1)
Quarter: 2023Q1

REPORT INFORMATION
  Report Type: Spontaneous
  Country: US (occurrence: None)
  Receive Date: 20230331
  Receipt Date: 20230331
  Transmission Date: 20230418
  Serious: Yes (Hospitalization)
  Sender: FDA-Public Use
  Company Number: None

PATIENT
  Sex: Female

DRUGS (17)
  1. LOKELMA [Suspect]
     Active Substance: SODIUM ZIRCONIUM CYCLOSILICATE
     Indication: Hyperkalaemia
     Dosage: FREQUENCY : AS NEEDED;?
     Route: 048
     Dates: start: 20220915
  2. LOKELMA [Suspect]
     Active Substance: SODIUM ZIRCONIUM CYCLOSILICATE
     Dosage: OTHER QUANTITY : MIX1 PACKET;?FREQUENCY : AS DIRECTED;?
     Route: 048
  3. AMITRIPTYLIN [Concomitant]
  4. BACLOFEN [Concomitant]
  5. COENZYME [Concomitant]
  6. GABAPENTIN [Concomitant]
  7. HYDROXYUREA [Concomitant]
     Active Substance: HYDROXYUREA
  8. INSULIN SYRG [Concomitant]
  9. LEVOTHYROXIN [Concomitant]
  10. MAGNESIUM [Concomitant]
  11. MELATONIN [Concomitant]
  12. METOPROLOL TARTRATE [Concomitant]
     Active Substance: METOPROLOL TARTRATE
  13. MULTI-VITE TAB [Concomitant]
  14. NOVOLIN N [Concomitant]
  15. REQUIP [Concomitant]
     Active Substance: ROPINIROLE HYDROCHLORIDE
  16. SIMVASTATIN [Concomitant]
  17. VITAMIN D3 [Concomitant]
     Active Substance: CHOLECALCIFEROL

REACTIONS (1)
  - Therapy interrupted [None]
